FAERS Safety Report 5741699-7 (Version None)
Quarter: 2008Q2

REPORT INFORMATION
  Report Type: 
  Country: None (occurrence: None)
  Receive Date: 20080519
  Receipt Date: 20070403
  Transmission Date: 20081010
  Serious: No
  Sender: FDA-Public Use
  Company Number: US-BAYER-US-2007-011766

PATIENT
  Age: 18 Year
  Sex: Male
  Weight: 71 kg

DRUGS (2)
  1. ULTRAVIST 300 [Suspect]
     Indication: COMPUTERISED TOMOGRAM ABDOMEN
     Dosage: UNIT DOSE: 96 ML
     Route: 042
     Dates: start: 20070319, end: 20070319
  2. VITAMIN CAP [Concomitant]

REACTIONS (1)
  - VOMITING [None]
